FAERS Safety Report 5594008-0 (Version None)
Quarter: 2008Q1

REPORT INFORMATION
  Report Type: 
  Country: None (occurrence: None)
  Receive Date: 20080114
  Receipt Date: 20071227
  Transmission Date: 20080703
  Serious: Yes (Hospitalization)
  Sender: FDA-Public Use
  Company Number: MPS1-10793

PATIENT
  Age: 29 Month
  Sex: Female
  Weight: 14.5 kg

DRUGS (2)
  1. ALDURAZYME [Suspect]
     Indication: MUCOPOLYSACCHARIDOSIS I
     Dosage: 400 U, QW, INTRAVENOUS
     Route: 042
  2. ALDURAZYME [Suspect]

REACTIONS (4)
  - INFUSION RELATED REACTION [None]
  - LIVEDO RETICULARIS [None]
  - MOANING [None]
  - PYREXIA [None]
